FAERS Safety Report 4555663-7 (Version None)
Quarter: 2005Q1

REPORT INFORMATION
  Report Type: 
  Country: None (occurrence: None)
  Receive Date: 20050111
  Receipt Date: 20040923
  Transmission Date: 20050727
  Serious: No
  Sender: FDA-Public Use
  Company Number: 2004S1000196

PATIENT
  Age: 61 Year
  Sex: Male
  Weight: 72.7 kg

DRUGS (3)
  1. CUBICIN [Suspect]
     Indication: STAPHYLOCOCCAL BACTERAEMIA
     Dosage: 6 MG/KG;IV
     Route: 042
     Dates: start: 20040912
  2. COSOPT [Concomitant]
  3. AMIKACIN [Concomitant]

REACTIONS (1)
  - THROMBOCYTOPENIA [None]
